FAERS Safety Report 7237651 (Version 4)
Quarter: 2012Q4

REPORT INFORMATION
  Report Type: 
  Country: CN (occurrence: CN)
  Receive Date: 20100105
  Receipt Date: 20121219
  Transmission Date: 20130627
  Serious: Yes (Hospitalization, Other)
  Sender: FDA-Public Use
  Company Number: PHHY2009CN58396

PATIENT
  Age: 23 Year
  Sex: Female
  Weight: 55 kg

DRUGS (2)
  1. TRILEPTAL [Suspect]
     Indication: FRONTAL LOBE EPILEPSY
     Dosage: 300 mg, QD per night
     Route: 048
     Dates: start: 20070718, end: 20091108
  2. PLAVIX [Concomitant]

REACTIONS (4)
  - Nephritic syndrome [Recovered/Resolved with Sequelae]
  - IgA nephropathy [Not Recovered/Not Resolved]
  - Back pain [Recovered/Resolved with Sequelae]
  - Acinetobacter infection [Recovered/Resolved with Sequelae]
